FAERS Safety Report 8819782 (Version 2)
Quarter: 2014Q3

REPORT INFORMATION
  Report Type: Report from Study
  Country: US (occurrence: US)
  Receive Date: 20121001
  Receipt Date: 20140819
  Transmission Date: 20150326
  Serious: Yes (Other)
  Sender: FDA-Public Use
  Company Number: US-ROCHE-1129838

PATIENT
  Sex: Female

DRUGS (6)
  1. DIDRONEL [Concomitant]
     Active Substance: ETIDRONATE DISODIUM
  2. HERCEPTIN [Suspect]
     Active Substance: TRASTUZUMAB
     Indication: METASTASES TO LYMPH NODES
     Dosage: MAINTAINENCE DOSE
     Route: 042
  3. CYCLOPHOSPHAMIDE. [Concomitant]
     Active Substance: CYCLOPHOSPHAMIDE
  4. HERCEPTIN [Suspect]
     Active Substance: TRASTUZUMAB
     Indication: BREAST CANCER FEMALE
  5. ADRIAMYCIN [Concomitant]
     Active Substance: DOXORUBICIN HYDROCHLORIDE
  6. HERCEPTIN [Suspect]
     Active Substance: TRASTUZUMAB
     Indication: BREAST CANCER
     Dosage: LOADING DOSE
     Route: 042
     Dates: start: 20011220

REACTIONS (5)
  - Urinary tract infection [Unknown]
  - Multiple sclerosis [Unknown]
  - Pollakiuria [Unknown]
  - Decreased appetite [Unknown]
  - Vulvovaginal candidiasis [Unknown]
